FAERS Safety Report 9021327 (Version 1)
Quarter: 2013Q1

REPORT INFORMATION
  Report Type: Spontaneous
  Country: US (occurrence: US)
  Receive Date: 20130119
  Receipt Date: 20130119
  Transmission Date: 20140127
  Serious: No
  Sender: FDA-Public Use
  Company Number: US-ALLERGAN-1202154US

PATIENT
  Age: 59 Year
  Sex: Female

DRUGS (3)
  1. BOTOX COSMETIC [Suspect]
     Indication: SKIN WRINKLING
     Dosage: 24 UNITS, SINGLE
     Route: 030
     Dates: start: 20120210, end: 20120210
  2. BOTOX COSMETIC [Suspect]
     Dosage: 6 UNITS, SINGLE
     Route: 030
     Dates: start: 20120210, end: 20120210
  3. BOTOX COSMETIC [Suspect]
     Dosage: 12 UNITS, SINGLE
     Route: 030
     Dates: start: 20120210, end: 20120210

REACTIONS (3)
  - Vertigo [Unknown]
  - Injection site paraesthesia [Unknown]
  - Injection site pruritus [Unknown]
